FAERS Safety Report 13807776 (Version 2)
Quarter: 2017Q3

REPORT INFORMATION
  Report Type: Spontaneous
  Country: IT (occurrence: IT)
  Receive Date: 20170728
  Receipt Date: 20170807
  Transmission Date: 20171127
  Serious: Yes (Other)
  Sender: FDA-Public Use
  Company Number: IT-SA-2017SA137332

PATIENT
  Age: 54 Year
  Sex: Female

DRUGS (1)
  1. IRBESARTAN. [Suspect]
     Active Substance: IRBESARTAN
     Route: 065

REACTIONS (4)
  - Colitis [Recovered/Resolved]
  - Weight decreased [Recovered/Resolved]
  - Enteritis [Recovered/Resolved]
  - Diarrhoea [Recovered/Resolved]
